FAERS Safety Report 24307755 (Version 1)
Quarter: 2024Q3

REPORT INFORMATION
  Report Type: Report from Study
  Country: CA (occurrence: CA)
  Receive Date: 20240911
  Receipt Date: 20240911
  Transmission Date: 20241017
  Serious: Yes (Other)
  Sender: SK LIFE SCIENCE
  Company Number: CA-SK LIFE SCIENCE, INC-SKPVG-2024-002106

PATIENT

DRUGS (1)
  1. XCOPRI [Suspect]
     Active Substance: CENOBAMATE
     Indication: Product used for unknown indication
     Dosage: 300 MILLIGRAM, DAILY
     Route: 065

REACTIONS (2)
  - Depressed level of consciousness [Recovered/Resolved]
  - Drooling [Recovered/Resolved]
